FAERS Safety Report 5000138-4 (Version None)
Quarter: 2006Q1

REPORT INFORMATION
  Report Type: 
  Country: None (occurrence: None)
  Receive Date: 20060315
  Receipt Date: 20051117
  Transmission Date: 20060701
  Serious: Yes (Other)
  Sender: FDA-Public Use
  Company Number: 415840

PATIENT
  Age: 48 Year
  Sex: Female

DRUGS (4)
  1. BONIVA [Suspect]
     Indication: OSTEOPOROSIS
     Dosage: ORAL
     Route: 048
     Dates: start: 20050824
  2. SYNTHROID [Concomitant]
  3. OSCAL (CALCIUM CARBONATE) [Concomitant]
  4. VITAMIN D (VITAMIN D NOS) [Concomitant]

REACTIONS (8)
  - BONE PAIN [None]
  - BOWEL SOUNDS ABNORMAL [None]
  - CHEST PAIN [None]
  - DIARRHOEA [None]
  - EATING DISORDER [None]
  - INFLUENZA LIKE ILLNESS [None]
  - LETHARGY [None]
  - NAUSEA [None]
